FAERS Safety Report 18134213 (Version 4)
Quarter: 2020Q4

REPORT INFORMATION
  Report Type: Report from Study
  Country: CA (occurrence: CA)
  Receive Date: 20200811
  Receipt Date: 20201202
  Transmission Date: 20210113
  Serious: Yes (Other)
  Sender: FDA-Public Use
  Company Number: CA-GLAXOSMITHKLINE-CA2020AMR128735

PATIENT
  Sex: Female

DRUGS (2)
  1. MEPOLIZUMAB [Suspect]
     Active Substance: MEPOLIZUMAB
     Dosage: 100 MG, Z(1 MONTH)
     Route: 042
     Dates: start: 20201005
  2. MEPOLIZUMAB [Suspect]
     Active Substance: MEPOLIZUMAB
     Indication: ASTHMA
     Dosage: 100 MG, Z(MONTHLY)
     Route: 042
     Dates: start: 20190605

REACTIONS (12)
  - Illness [Unknown]
  - Gastric disorder [Not Recovered/Not Resolved]
  - Pneumonia [Unknown]
  - Pyrexia [Unknown]
  - Clostridium difficile infection [Unknown]
  - Myalgia [Unknown]
  - Therapy interrupted [Unknown]
  - Chills [Unknown]
  - SARS-CoV-2 test negative [Recovered/Resolved]
  - Bacterial infection [Unknown]
  - Computerised tomogram abnormal [Unknown]
  - Pneumonitis [Unknown]
